FAERS Safety Report 7660170-9 (Version None)
Quarter: 2011Q3

REPORT INFORMATION
  Report Type: 
  Country: None (occurrence: None)
  Receive Date: 20110805
  Receipt Date: 20110801
  Transmission Date: 20111222
  Serious: Yes (Death, Hospitalization)
  Sender: FDA-Public Use
  Company Number: PHHY2011SI49373

PATIENT
  Age: 67 Year
  Sex: Male

DRUGS (7)
  1. ENALAPRIL MALEATE [Concomitant]
  2. CARVEDILOL [Concomitant]
  3. TASIGNA [Suspect]
     Indication: CHRONIC MYELOID LEUKAEMIA
     Dosage: 400 MG, BID
  4. ASPIRIN [Concomitant]
  5. FLUVASTATIN [Concomitant]
  6. INDAPAMIDE [Concomitant]
  7. ISOSORBIDE MONONITRATE [Concomitant]

REACTIONS (12)
  - CHEST DISCOMFORT [None]
  - PNEUMONITIS [None]
  - TACHYPNOEA [None]
  - CARDIAC ENZYMES INCREASED [None]
  - NAUSEA [None]
  - BODY TEMPERATURE INCREASED [None]
  - ACUTE MYOCARDIAL INFARCTION [None]
  - OEDEMA PERIPHERAL [None]
  - VENTRICULAR FIBRILLATION [None]
  - DIZZINESS [None]
  - RESPIRATORY DISTRESS [None]
  - DYSPNOEA [None]
